FAERS Safety Report 5284265-2 (Version None)
Quarter: 2007Q2

REPORT INFORMATION
  Report Type: 
  Country: None (occurrence: None)
  Receive Date: 20070403
  Receipt Date: 20070329
  Transmission Date: 20071010
  Serious: Yes (Death, Hospitalization)
  Sender: FDA-Public Use
  Company Number: PHFR2007GB00976

PATIENT
  Age: 47 Year
  Sex: Male
  Weight: 70 kg

DRUGS (8)
  1. CLOZAPINE [Suspect]
     Indication: SCHIZOPHRENIA
     Dosage: UNK, UNK
     Route: 048
     Dates: start: 20010904
  2. CLOZAPINE [Suspect]
     Dosage: 500MG / DAY
     Route: 048
     Dates: start: 20060501
  3. LOFEPRAMINE [Concomitant]
     Indication: DEPRESSION
     Dosage: 210MG/DAY
     Route: 048
     Dates: start: 20011101
  4. SIMVASTATIN [Concomitant]
     Dosage: 20MG / DAY
     Route: 048
  5. TERBINAFINE [Concomitant]
     Dosage: 250MG / DAY
     Route: 048
  6. GLICLAZIDE [Concomitant]
     Dosage: 240MG/DAY
     Route: 048
  7. LISINOPRIL [Concomitant]
     Dosage: 10MG/DAY
     Route: 048
  8. NIFEDIPINE [Concomitant]
     Dosage: 60MG/DAY
     Route: 048

REACTIONS (7)
  - COLECTOMY TOTAL [None]
  - INTESTINAL PERFORATION [None]
  - MALAISE [None]
  - MEGACOLON [None]
  - PAIN [None]
  - RENAL FAILURE [None]
  - SEPSIS [None]
